FAERS Safety Report 23803453 (Version 1)
Quarter: 2024Q2

REPORT INFORMATION
  Report Type: Spontaneous
  Country: KR (occurrence: KR)
  Receive Date: 20240501
  Receipt Date: 20240501
  Transmission Date: 20240716
  Serious: No
  Sender: FDA-Public Use
  Company Number: KR-PFIZER INC-PV202400054287

PATIENT
  Sex: Male

DRUGS (1)
  1. GENOTROPIN [Suspect]
     Active Substance: SOMATROPIN
     Dosage: 3.6 IU, 6 TIMES PER WEEK

REACTIONS (2)
  - Wrong technique in device usage process [Unknown]
  - Drug dose omission by device [Unknown]
